FAERS Safety Report 9260881 (Version 1)
Quarter: 2013Q2

REPORT INFORMATION
  Report Type: Spontaneous
  Country: US (occurrence: US)
  Receive Date: 20130429
  Receipt Date: 20130429
  Transmission Date: 20140414
  Serious: No
  Sender: FDA-Public Use
  Company Number: US-AMGEN-USASP2012015599

PATIENT
  Age: 73 Year
  Sex: Male
  Weight: 87.08 kg

DRUGS (13)
  1. SENSIPAR [Suspect]
     Indication: RENAL FAILURE CHRONIC
     Dosage: 60 MG, QD
     Route: 048
     Dates: start: 201211
  2. SENSIPAR [Suspect]
     Dosage: 60 MG, QD
     Route: 048
     Dates: start: 20120303, end: 20120313
  3. SENSIPAR [Suspect]
     Dosage: 30 MG, QD
     Route: 048
     Dates: start: 201111
  4. CRESTOR [Concomitant]
     Dosage: 40 MG, QD
     Route: 048
  5. LOPRESSOR [Concomitant]
     Dosage: 50 MG, BID
  6. COUMADIN [Concomitant]
     Dosage: 2.5 MG, QD
     Route: 048
  7. BUMEX [Concomitant]
     Dosage: 2 MG, QD
     Route: 048
  8. RESTORIL [Concomitant]
     Dosage: 30 MG, QD
     Route: 048
  9. HYDROCODONE/ACETAMINOPHEN [Concomitant]
     Dosage: 2.5 UNK, UNK
  10. ZAROXOLYN [Concomitant]
     Dosage: 2.5 MG, QD
  11. ALPRAZOLAM [Concomitant]
     Dosage: 0.5 MG, BID
  12. VITAMIN C [Concomitant]
     Dosage: UNK
     Route: 048
  13. ASA [Concomitant]
     Dosage: 81 MG, QD
     Route: 048

REACTIONS (3)
  - Sleep disorder [Unknown]
  - Muscle spasms [Recovered/Resolved]
  - Nausea [Recovered/Resolved]
